FAERS Safety Report 8041208-6 (Version None)
Quarter: 2012Q1

REPORT INFORMATION
  Report Type: 
  Country: None (occurrence: None)
  Receive Date: 20120112
  Receipt Date: 20120111
  Transmission Date: 20120608
  Serious: Yes (Hospitalization)
  Sender: FDA-Public Use
  Company Number: US-JNJFOC-20120104027

PATIENT
  Sex: Female
  Weight: 54.89 kg

DRUGS (1)
  1. LEVOFLOXACIN [Suspect]
     Indication: PNEUMONIA
     Route: 048
     Dates: start: 20111129, end: 20111206

REACTIONS (4)
  - EATING DISORDER [None]
  - BLOOD PHOSPHORUS DECREASED [None]
  - ABNORMAL LOSS OF WEIGHT [None]
  - CLOSTRIDIAL INFECTION [None]
